FAERS Safety Report 19515118 (Version 1)
Quarter: 2021Q3

REPORT INFORMATION
  Report Type: Report from Study
  Country: US (occurrence: US)
  Receive Date: 20210710
  Receipt Date: 20210710
  Transmission Date: 20211014
  Serious: Yes (Other)
  Sender: FDA-Public Use
  Company Number: US-SHIRE-US202024963

PATIENT
  Age: 51 Year
  Sex: Female

DRUGS (6)
  1. HYQVIA [Suspect]
     Active Substance: HUMAN IMMUNOGLOBULIN G\HYALURONIDASE RECOMBINANT HUMAN
     Indication: PRIMARY IMMUNODEFICIENCY SYNDROME
     Dosage: RAMP UP PERIOD. SHOULD BE TOTAL OF 3 INFUSIONS IN 4 WEEK PERIOD
     Route: 050
     Dates: start: 20200715, end: 20200722
  2. HYQVIA [Suspect]
     Active Substance: HUMAN IMMUNOGLOBULIN G\HYALURONIDASE RECOMBINANT HUMAN
     Dosage: UNK
     Route: 065
  3. HYQVIA [Suspect]
     Active Substance: HUMAN IMMUNOGLOBULIN G\HYALURONIDASE RECOMBINANT HUMAN
     Dosage: UNK
     Route: 065
  4. GAMMAGARD LIQUID [Suspect]
     Active Substance: HUMAN IMMUNOGLOBULIN G
     Indication: PRIMARY IMMUNODEFICIENCY SYNDROME
     Route: 058
  5. HYQVIA [Suspect]
     Active Substance: HUMAN IMMUNOGLOBULIN G\HYALURONIDASE RECOMBINANT HUMAN
     Dosage: UNK
     Route: 065
  6. CUVITRU [Suspect]
     Active Substance: HUMAN IMMUNOGLOBULIN G
     Indication: PRIMARY IMMUNODEFICIENCY SYNDROME
     Route: 065

REACTIONS (28)
  - Feeling abnormal [Unknown]
  - Fatigue [Unknown]
  - Precancerous skin lesion [Unknown]
  - Injection site swelling [Recovered/Resolved]
  - Insurance issue [Unknown]
  - Product dose omission issue [Unknown]
  - Immunoglobulins decreased [Unknown]
  - Sinusitis [Unknown]
  - Alopecia [Unknown]
  - Therapy interrupted [Unknown]
  - Arthralgia [Unknown]
  - Weight increased [Unknown]
  - Antinuclear antibody positive [Unknown]
  - Injection site erythema [Recovered/Resolved]
  - Oropharyngeal pain [Recovered/Resolved]
  - Injection site pain [Not Recovered/Not Resolved]
  - Immune system disorder [Unknown]
  - Arthritis [Unknown]
  - Infusion site bruising [Unknown]
  - Pyrexia [Unknown]
  - Injection site rash [Not Recovered/Not Resolved]
  - Inflammation [Unknown]
  - Localised infection [Unknown]
  - Basal cell carcinoma [Unknown]
  - Sensation of foreign body [Not Recovered/Not Resolved]
  - Periarthritis [Unknown]
  - Abscess jaw [Unknown]
  - Headache [Unknown]

NARRATIVE: CASE EVENT DATE: 20200715
